FAERS Safety Report 9560040 (Version 2)
Quarter: 2014Q2

REPORT INFORMATION
  Report Type: Spontaneous
  Country: IT (occurrence: None)
  Receive Date: 20130924
  Receipt Date: 20140409
  Transmission Date: 20141212
  Serious: Yes (Hospitalization)
  Sender: FDA-Public Use
  Company Number: AUR-APL-2013-07716

PATIENT
  Age: 32 Year
  Sex: Male

DRUGS (1)
  1. CITALOPRAM [Suspect]
     Indication: DEPRESSION
     Dosage: (10 ML,TOTAL)
     Route: 048
     Dates: start: 20130904, end: 20130904

REACTIONS (6)
  - Dry mouth [None]
  - Presyncope [None]
  - Tachycardia [None]
  - Tremor [None]
  - Toxicity to various agents [None]
  - Intentional overdose [None]
